FAERS Safety Report 18018413 (Version 1)
Quarter: 2020Q3

REPORT INFORMATION
  Report Type: Spontaneous
  Country: US (occurrence: US)
  Receive Date: 20200713
  Receipt Date: 20200713
  Transmission Date: 20201103
  Serious: Yes (Hospitalization)
  Sender: FDA-Public Use
  Company Number: None

PATIENT
  Sex: Female

DRUGS (6)
  1. METOPROL SUC [Concomitant]
  2. VICTOZA [Concomitant]
     Active Substance: LIRAGLUTIDE
  3. TADALAFIL 20MG TAB [Suspect]
     Active Substance: TADALAFIL
     Indication: PULMONARY ARTERIAL HYPERTENSION
     Route: 048
     Dates: start: 20170203
  4. LISINOPRIL. [Concomitant]
     Active Substance: LISINOPRIL
  5. AMBRISENTAN [Concomitant]
     Active Substance: AMBRISENTAN
  6. ALLOPURINOL. [Concomitant]
     Active Substance: ALLOPURINOL

REACTIONS (2)
  - COVID-19 [None]
  - Dialysis [None]
